APPROVED DRUG PRODUCT: RALTEGRAVIR POTASSIUM
Active Ingredient: RALTEGRAVIR POTASSIUM
Strength: EQ 400MG BASE
Dosage Form/Route: TABLET;ORAL
Application: A203540 | Product #001
Applicant: HETERO LABS LTD UNIT III
Approved: Dec 19, 2024 | RLD: No | RS: No | Type: DISCN